FAERS Safety Report 5227467-3 (Version None)
Quarter: 2007Q1

REPORT INFORMATION
  Report Type: 
  Country: None (occurrence: None)
  Receive Date: 20070202
  Receipt Date: 20070126
  Transmission Date: 20070707
  Serious: Yes (Hospitalization)
  Sender: FDA-Public Use
  Company Number: US-ELI_LILLY_AND_COMPANY-US200701005737

PATIENT
  Age: 37 Year
  Sex: Male

DRUGS (4)
  1. HUMULIN N [Suspect]
     Indication: DIABETES MELLITUS
     Dosage: UNK, UNK
     Dates: start: 19800101
  2. HUMULIN R [Suspect]
     Indication: DIABETES MELLITUS
     Dosage: UNK, UNK
     Dates: start: 19800101
  3. WELLBUTRIN SR [Concomitant]
     Indication: DEPRESSION
     Dosage: 150 MG, UNK
     Route: 048
  4. TRAZODONE HCL [Concomitant]
     Indication: DEPRESSION
     Dosage: 100 MG, UNK

REACTIONS (3)
  - ENCEPHALITIS [None]
  - NEUROPATHY [None]
  - SUICIDAL IDEATION [None]
